FAERS Safety Report 5427565-5 (Version None)
Quarter: 2007Q3

REPORT INFORMATION
  Report Type: 
  Country: None (occurrence: None)
  Receive Date: 20070828
  Receipt Date: 20070823
  Transmission Date: 20080115
  Serious: Yes (Other)
  Sender: FDA-Public Use
  Company Number: B0474723A

PATIENT
  Age: 36 Year
  Sex: Female
  Weight: 54 kg

DRUGS (2)
  1. PAXIL [Suspect]
     Indication: DEPRESSION
     Dosage: 10MG PER DAY
     Route: 048
     Dates: start: 20070530, end: 20070607
  2. MARVELON 28 [Concomitant]
     Route: 048
     Dates: start: 20070530

REACTIONS (9)
  - ANOREXIA [None]
  - ASTHENIA [None]
  - ASTHENOPIA [None]
  - BEDRIDDEN [None]
  - DEPRESSED MOOD [None]
  - MALAISE [None]
  - NAUSEA [None]
  - SOMNOLENCE [None]
  - VISUAL ACUITY REDUCED [None]
